FAERS Safety Report 6515895-5 (Version None)
Quarter: 2009Q4

REPORT INFORMATION
  Report Type: 
  Country: None (occurrence: None)
  Receive Date: 20091217
  Receipt Date: 20090406
  Transmission Date: 20100525
  Serious: Yes (Hospitalization, Other)
  Sender: FDA-Public Use
  Company Number: 58496

PATIENT
  Age: 65 Year
  Sex: Male

DRUGS (1)
  1. CISPLATIN [Suspect]
     Indication: HEAD AND NECK CANCER
     Dosage: 145MG
     Dates: start: 20090303

REACTIONS (3)
  - DEHYDRATION [None]
  - LABORATORY TEST ABNORMAL [None]
  - NAUSEA [None]
